FAERS Safety Report 10984679 (Version 2)
Quarter: 2015Q2

REPORT INFORMATION
  Report Type: Spontaneous
  Country: US (occurrence: US)
  Receive Date: 20150403
  Receipt Date: 20150525
  Transmission Date: 20150821
  Serious: No
  Sender: FDA-Public Use
  Company Number: US-JNJFOC-20140202184

PATIENT
  Age: 42 Year
  Sex: Female
  Weight: 91.63 kg

DRUGS (1)
  1. IMODIUM [Suspect]
     Active Substance: LOPERAMIDE HYDROCHLORIDE
     Indication: IRRITABLE BOWEL SYNDROME
     Dosage: DOSEGE 1 TO 2 TABLETS INTERVAL 4 TO 5X DAY FOR 2 OR 3 DAYS.
     Route: 048

REACTIONS (1)
  - Overdose [Unknown]
